FAERS Safety Report 23242723 (Version 1)
Quarter: 2023Q4

REPORT INFORMATION
  Report Type: Spontaneous
  Country: US (occurrence: US)
  Receive Date: 20231129
  Receipt Date: 20231129
  Transmission Date: 20240109
  Serious: Yes (Hospitalization)
  Sender: FDA-Public Use
  Company Number: US-Fresenius Medical Care Renal Therapies Group-FMC-2311-001232

PATIENT
  Age: 43 Year
  Sex: Male

DRUGS (3)
  1. DELFLEX WITH DEXTROSE 1.5% LOW MAGNESIUM LOW CALCIUM [Suspect]
     Active Substance: CALCIUM CHLORIDE\DEXTROSE\MAGNESIUM CHLORIDE\SODIUM CHLORIDE\SODIUM LACTATE
     Dosage: EXCHANGES 4, FILL VOLUME 3000 ML, LAST FILL VOLUME 2000 ML, TOTAL VOLUME 14,000 ML, DWELL TIME 2 HOU
     Route: 033
  2. DELFLEX WITH DEXTROSE 2.5% LOW MAGNESIUM LOW CALCIUM [Suspect]
     Active Substance: CALCIUM CHLORIDE\DEXTROSE\MAGNESIUM CHLORIDE\SODIUM CHLORIDE\SODIUM LACTATE
     Dosage: EXCHANGES 4, FILL VOLUME 3000 ML, LAST FILL VOLUME 2000 ML, TOTAL VOLUME 14,000 ML, DWELL TIME 2 HO
     Route: 033
  3. DELFLEX WITH DEXTROSE 4.25% LOW MAGNESIUM LOW CALCIUM [Suspect]
     Active Substance: CALCIUM CHLORIDE\DEXTROSE\MAGNESIUM CHLORIDE\SODIUM CHLORIDE\SODIUM LACTATE
     Dosage: EXCHANGES 4, FILL VOLUME 3000 ML, LAST FILL VOLUME 2000 ML, TOTAL VOLUME 14,000 ML, DWELL TIME 2 HO
     Route: 033

REACTIONS (2)
  - Peritonitis bacterial [Recovering/Resolving]
  - Hypervolaemia [Unknown]
